FAERS Safety Report 6544152-6 (Version None)
Quarter: 2010Q1

REPORT INFORMATION
  Report Type: 
  Country: None (occurrence: None)
  Receive Date: 20100119
  Receipt Date: 20100119
  Transmission Date: 20100710
  Serious: No
  Sender: FDA-Public Use
  Company Number: None

PATIENT
  Age: 65 Year
  Sex: Male
  Weight: 74.3899 kg

DRUGS (1)
  1. ROLAIDS TABLETS PFIZER [Suspect]
     Indication: ABDOMINAL DISTENSION
     Dosage: 2 TABLETS TWICE PO
     Route: 048
     Dates: start: 20100106, end: 20100109

REACTIONS (3)
  - DIARRHOEA [None]
  - IMPAIRED WORK ABILITY [None]
  - VOMITING [None]
